FAERS Safety Report 24996512 (Version 1)
Quarter: 2025Q1

REPORT INFORMATION
  Report Type: Spontaneous
  Country: US (occurrence: None)
  Receive Date: 20250221
  Receipt Date: 20250221
  Transmission Date: 20250409
  Serious: Yes (Other)
  Sender: FDA-CTU
  Company Number: None

PATIENT
  Age: 46 Year
  Sex: Female
  Weight: 122.4 kg

DRUGS (2)
  1. CUTAQUIG [Suspect]
     Active Substance: HUMAN IMMUNOGLOBULIN G
     Indication: Hypogammaglobulinaemia
     Route: 058
     Dates: start: 20250216
  2. HIZENTRA [Concomitant]
     Active Substance: HUMAN IMMUNOGLOBULIN G

REACTIONS (6)
  - Hypertension [None]
  - Palpitations [None]
  - Pyrexia [None]
  - Headache [None]
  - Injection site erythema [None]
  - Injection site swelling [None]

NARRATIVE: CASE EVENT DATE: 20250216
